FAERS Safety Report 21587335 (Version 1)
Quarter: 2022Q4

REPORT INFORMATION
  Report Type: Spontaneous
  Country: US (occurrence: US)
  Receive Date: 20221114
  Receipt Date: 20221114
  Transmission Date: 20230113
  Serious: Yes (Other)
  Sender: FDA-Public Use
  Company Number: US-SANOFI-01355664

PATIENT
  Age: 75 Year
  Sex: Female

DRUGS (1)
  1. LANTUS SOLOSTAR [Suspect]
     Active Substance: INSULIN GLARGINE
     Indication: Type 2 diabetes mellitus
     Dosage: 20 UNITS QAM AND 30 UNITS QHS.
     Dates: start: 2018

REACTIONS (5)
  - Cataract [Unknown]
  - Eye haemorrhage [Recovering/Resolving]
  - Condition aggravated [Recovering/Resolving]
  - Visual impairment [Unknown]
  - Inappropriate schedule of product administration [Unknown]
